FAERS Safety Report 5055262-7 (Version None)
Quarter: 2006Q3

REPORT INFORMATION
  Report Type: 
  Country: None (occurrence: None)
  Receive Date: 20060714
  Receipt Date: 20050117
  Transmission Date: 20061208
  Serious: Yes (Disabling, Other)
  Sender: FDA-Public Use
  Company Number: 2005012978

PATIENT
  Age: 38 Year
  Sex: Female
  Weight: 50 kg

DRUGS (2)
  1. CELEBREX [Suspect]
     Indication: ADENOMA BENIGN
     Dosage: 800 MG (400 MG, INTERVAL: EVERY DAY), ORAL
     Route: 048
     Dates: start: 20040201, end: 20041218
  2. PANTOLOC (PANTOPRAZOLE) [Concomitant]

REACTIONS (1)
  - GASTRIC CANCER [None]
